FAERS Safety Report 6781887-4 (Version None)
Quarter: 2010Q2

REPORT INFORMATION
  Report Type: 
  Country: None (occurrence: None)
  Receive Date: 20100621
  Receipt Date: 20100613
  Transmission Date: 20101027
  Serious: Yes (Other)
  Sender: FDA-Public Use
  Company Number: US-SANOFI-AVENTIS-2010SA034974

PATIENT
  Sex: Female

DRUGS (5)
  1. SOLOSTAR [Suspect]
  2. LANTUS [Suspect]
  3. CARDIAC THERAPY [Concomitant]
     Indication: CARDIAC DISORDER
  4. NOVOLOG [Concomitant]
  5. ALL OTHER THERAPEUTIC PRODUCTS [Concomitant]
     Indication: MENTAL DISORDER

REACTIONS (2)
  - DEVICE MALFUNCTION [None]
  - PRODUCT QUALITY ISSUE [None]
